FAERS Safety Report 12676938 (Version 1)
Quarter: 2016Q3

REPORT INFORMATION
  Report Type: Spontaneous
  Country: US (occurrence: US)
  Receive Date: 20160823
  Receipt Date: 20160823
  Transmission Date: 20161109
  Serious: No
  Sender: FDA-Public Use
  Company Number: US-TEVA-594427USA

PATIENT
  Sex: Male

DRUGS (1)
  1. CLONIDINE. [Suspect]
     Active Substance: CLONIDINE
     Indication: HYPERTENSION
     Dosage: .2 MILLIGRAM DAILY; APPLYING 1 PATCH WEEKLY
     Route: 062
     Dates: start: 20150727

REACTIONS (3)
  - Product adhesion issue [Unknown]
  - Blood pressure increased [Unknown]
  - Therapeutic response decreased [Unknown]
